FAERS Safety Report 19773435 (Version 1)
Quarter: 2021Q3

REPORT INFORMATION
  Report Type: Spontaneous
  Country: IT (occurrence: IT)
  Receive Date: 20210901
  Receipt Date: 20210901
  Transmission Date: 20211014
  Serious: Yes (Other)
  Sender: FDA-Public Use
  Company Number: IT-SHILPA MEDICARE LIMITED-SML-IT-2021-01038

PATIENT
  Age: 69 Year
  Sex: Female
  Weight: 70 kg

DRUGS (3)
  1. TUCATINIB [Suspect]
     Active Substance: TUCATINIB
     Indication: HER2 POSITIVE BREAST CANCER
     Route: 048
     Dates: start: 20210524, end: 20210818
  2. TRASTUZUMAB. [Suspect]
     Active Substance: TRASTUZUMAB
     Indication: HER2 POSITIVE BREAST CANCER
     Route: 058
  3. CAPECITABINA, UNKNOWN [Suspect]
     Active Substance: CAPECITABINE
     Indication: HER2 POSITIVE BREAST CANCER
     Dosage: 1000 MG/M2, BID, DAYS 1 TO 14 OF A 21?DAY CYCLE
     Route: 048

REACTIONS (2)
  - Hepatic cyst [Not Recovered/Not Resolved]
  - Disease progression [Not Recovered/Not Resolved]

NARRATIVE: CASE EVENT DATE: 20210818
